FAERS Safety Report 8812295 (Version 1)
Quarter: 2012Q4

REPORT INFORMATION
  Report Type: 
  Country: US (occurrence: US)
  Receive Date: 20120927
  Receipt Date: 20120927
  Transmission Date: 20130627
  Serious: Yes (Other)
  Sender: FDA-Public Use
  Company Number: US-ROCHE-1096239

PATIENT
  Sex: Female

DRUGS (5)
  1. AVASTIN [Suspect]
     Indication: BREAST CANCER FEMALE
     Route: 065
     Dates: end: 20060302
  2. XELODA [Suspect]
     Indication: BREAST CANCER FEMALE
     Route: 065
  3. CARBOPLATIN [Concomitant]
  4. TAXOL [Concomitant]
  5. GEMZAR [Concomitant]

REACTIONS (4)
  - Disease progression [Unknown]
  - Anaemia [Unknown]
  - Metastases to bone [Unknown]
  - Fatigue [Unknown]
